FAERS Safety Report 7667839-0 (Version None)
Quarter: 2011Q3

REPORT INFORMATION
  Report Type: 
  Country: None (occurrence: None)
  Receive Date: 20110806
  Receipt Date: 20110613
  Transmission Date: 20111222
  Serious: No
  Sender: FDA-Public Use
  Company Number: US-ABBOTT-11P-163-0731922-00

PATIENT
  Sex: Male
  Weight: 104.42 kg

DRUGS (3)
  1. UNKNOWN MEDICATION [Concomitant]
     Indication: DIABETES MELLITUS
     Dosage: PILL FOR DIABETES
  2. NIASPAN [Suspect]
     Indication: BLOOD LACTATE DEHYDROGENASE ABNORMAL
     Dates: start: 20110606
  3. INSULIN [Concomitant]
     Indication: PRODUCT USED FOR UNKNOWN INDICATION

REACTIONS (1)
  - BLOOD GLUCOSE INCREASED [None]
